FAERS Safety Report 4887561-3 (Version None)
Quarter: 2006Q1

REPORT INFORMATION
  Report Type: 
  Country: None (occurrence: None)
  Receive Date: 20060118
  Receipt Date: 20060109
  Transmission Date: 20060701
  Serious: Yes (Life-Threatening, Hospitalization, Other)
  Sender: FDA-Public Use
  Company Number: 2005-11-0088

PATIENT
  Age: 70 Year
  Sex: Male

DRUGS (3)
  1. TEMODAL [Suspect]
     Indication: GLIOBLASTOMA MULTIFORME
     Dosage: 160 MG QD ORAL
     Route: 048
     Dates: start: 20050925, end: 20051030
  2. RADIATION THERAPY [Concomitant]
  3. GLIOBLASTOMA MULTIFORME [Concomitant]

REACTIONS (6)
  - CARDIAC FAILURE [None]
  - CARDIOVASCULAR INSUFFICIENCY [None]
  - HYPOTENSION [None]
  - PULMONARY EMBOLISM [None]
  - PULMONARY HYPERTENSION [None]
  - TACHYCARDIA [None]
